FAERS Safety Report 14215743 (Version 1)
Quarter: 2017Q4

REPORT INFORMATION
  Report Type: Spontaneous
  Country: US (occurrence: US)
  Receive Date: 20171122
  Receipt Date: 20171122
  Transmission Date: 20180321
  Serious: Yes (Other)
  Sender: FDA-Public Use
  Company Number: US-BAYER-2017-222666

PATIENT
  Sex: Female

DRUGS (1)
  1. BAYER LOW DOSE [Suspect]
     Active Substance: ASPIRIN
     Dosage: 1 DF, UNK
     Route: 048

REACTIONS (5)
  - Retching [Unknown]
  - Wrong technique in product usage process [Unknown]
  - Choking [Unknown]
  - Throat tightness [Unknown]
  - Throat irritation [Unknown]
